FAERS Safety Report 5659415-6 (Version None)
Quarter: 2008Q1

REPORT INFORMATION
  Report Type: 
  Country: None (occurrence: None)
  Receive Date: 20080311
  Receipt Date: 20080221
  Transmission Date: 20080703
  Serious: Yes (Other)
  Sender: FDA-Public Use
  Company Number: CH-RANBAXY-2008RR-13203

PATIENT

DRUGS (4)
  1. FLUOXETINE RANBAXY 20 MG GELULE [Suspect]
     Dosage: 20 MG, QD
  2. MODAFINIL [Concomitant]
  3. METILPHENIDATE [Concomitant]
  4. MAZINDOL [Concomitant]

REACTIONS (1)
  - CATAPLEXY [None]
